FAERS Safety Report 6463343-6 (Version None)
Quarter: 2009Q4

REPORT INFORMATION
  Report Type: 
  Country: None (occurrence: None)
  Receive Date: 20091130
  Receipt Date: 20090806
  Transmission Date: 20100525
  Serious: Yes (Other)
  Sender: FDA-Public Use
  Company Number: US-AMGEN-QUU358963

PATIENT
  Sex: Female
  Weight: 63.6 kg

DRUGS (10)
  1. ENBREL [Suspect]
     Indication: RHEUMATOID ARTHRITIS
     Route: 058
     Dates: start: 20030423, end: 20090715
  2. UNSPECIFIED MEDICATION [Suspect]
  3. METHOTREXATE [Concomitant]
     Dates: start: 20020529
  4. AMLODIPINE [Concomitant]
  5. INSULIN [Concomitant]
  6. FOSAMAX [Concomitant]
  7. GLYBURIDE [Concomitant]
  8. METFORMIN HCL [Concomitant]
  9. RAMIPRIL [Concomitant]
  10. SIMVASTATIN [Concomitant]

REACTIONS (1)
  - B-CELL LYMPHOMA [None]
